FAERS Safety Report 9013964 (Version 1)
Quarter: 2013Q1

REPORT INFORMATION
  Report Type: Spontaneous
  Country: DK (occurrence: DK)
  Receive Date: 20130115
  Receipt Date: 20130115
  Transmission Date: 20140127
  Serious: Yes (Hospitalization, Other)
  Sender: FDA-Public Use
  Company Number: DK-JNJFOC-20130103472

PATIENT
  Sex: Male

DRUGS (4)
  1. RISPERDAL [Suspect]
     Indication: SCHIZOPHRENIA
     Route: 030
     Dates: start: 200107
  2. RISPERDAL [Suspect]
     Indication: PSYCHOTIC DISORDER
     Route: 030
     Dates: start: 200107
  3. CISORDINOL [Suspect]
     Indication: SCHIZOPHRENIA
     Route: 065
     Dates: start: 1996
  4. CISORDINOL [Suspect]
     Indication: PSYCHOTIC DISORDER
     Route: 065
     Dates: start: 1996

REACTIONS (4)
  - Poor personal hygiene [Unknown]
  - Psychotic disorder [Unknown]
  - Periodontitis [Unknown]
  - Dry mouth [Unknown]
